FAERS Safety Report 5943771-5 (Version None)
Quarter: 2008Q4

REPORT INFORMATION
  Report Type: 
  Country: None (occurrence: None)
  Receive Date: 20081106
  Receipt Date: 20080924
  Transmission Date: 20090506
  Serious: No
  Sender: FDA-Public Use
  Company Number: US-BAYER-200834315NA

PATIENT
  Age: 37 Year
  Sex: Female
  Weight: 93 kg

DRUGS (2)
  1. MAGNEVIST [Suspect]
     Indication: NUCLEAR MAGNETIC RESONANCE IMAGING
     Dosage: TOTAL DAILY DOSE: 20 ML
     Route: 042
     Dates: start: 20080924, end: 20080924
  2. DILAUDID [Concomitant]
     Indication: PREMEDICATION
     Dates: start: 20080924

REACTIONS (1)
  - VOMITING [None]
